FAERS Safety Report 7933716-0 (Version None)
Quarter: 2011Q4

REPORT INFORMATION
  Report Type: 
  Country: None (occurrence: None)
  Receive Date: 20111122
  Receipt Date: 20111107
  Transmission Date: 20120403
  Serious: Yes (Hospitalization)
  Sender: FDA-Public Use
  Company Number: US-ROCHE-1012479

PATIENT

DRUGS (3)
  1. HERCEPTIN [Suspect]
     Dosage: OVER 30 MINUTES EVERY WEEK ON DAY 1 FOR 4 WEEK, EVERY 4 WEEK
     Route: 042
  2. TIPIFARNIB [Suspect]
     Indication: NEOPLASM MALIGNANT
     Dosage: EVERY 12 HOUR FOR 3 WEEK EVERY 4 WEEK,DATE OF LAST DOSE:26 DECEMBER 2001
     Route: 048
     Dates: start: 20011115
  3. HERCEPTIN [Suspect]
     Indication: NEOPLASM MALIGNANT
     Dosage: OVER 90 MINUTES ON DAY 1 OF CYCLE 1
     Route: 042
     Dates: start: 20011115

REACTIONS (1)
  - FRACTURE [None]
